FAERS Safety Report 8955084 (Version 2)
Quarter: 2013Q1

REPORT INFORMATION
  Report Type: Spontaneous
  Country: US (occurrence: US)
  Receive Date: 20121207
  Receipt Date: 20130107
  Transmission Date: 20140127
  Serious: Yes (Hospitalization)
  Sender: FDA-Public Use
  Company Number: US-US-EMD SERONO, INC.-7179126

PATIENT
  Age: 53 Year
  Sex: Female
  Weight: 68 kg

DRUGS (2)
  1. REBIF [Suspect]
     Indication: MULTIPLE SCLEROSIS
     Dates: start: 200608
  2. REBIF [Suspect]
     Dates: start: 201210

REACTIONS (6)
  - Streptococcus test positive [Recovered/Resolved]
  - Injection site abscess [Recovered/Resolved]
  - Injection site cellulitis [Recovered/Resolved]
  - Rhinitis [Unknown]
  - Urinary tract infection [Recovered/Resolved]
  - Injection site calcification [Unknown]
